FAERS Safety Report 9301290 (Version 1)
Quarter: 2013Q2

REPORT INFORMATION
  Report Type: Spontaneous
  Country: US (occurrence: US)
  Receive Date: 20130521
  Receipt Date: 20130521
  Transmission Date: 20140414
  Serious: No
  Sender: FDA-Public Use
  Company Number: US-PFIZER INC-2013152453

PATIENT
  Age: 66 Year
  Sex: Female
  Weight: 36.3 kg

DRUGS (2)
  1. PREMARIN [Suspect]
     Indication: VULVOVAGINAL DRYNESS
     Dosage: UNK, 2X/WEEK AT NIGHT
     Route: 067
     Dates: start: 2010
  2. PREMARIN [Suspect]
     Indication: HOT FLUSH
     Dosage: UNK, 1X/DAY

REACTIONS (1)
  - Vulvovaginal mycotic infection [Unknown]
